FAERS Safety Report 16280119 (Version 1)
Quarter: 2019Q2

REPORT INFORMATION
  Report Type: Spontaneous
  Country: FR (occurrence: FR)
  Receive Date: 20190507
  Receipt Date: 20190507
  Transmission Date: 20190711
  Serious: Yes (Death)
  Sender: FDA-Public Use
  Company Number: FR-KADMON PHARMACEUTICALS, LLC-KAD201904-000304

PATIENT
  Age: 59 Year
  Sex: Male
  Weight: 91 kg

DRUGS (16)
  1. HEPARINE CHOAY [Suspect]
     Active Substance: HEPARIN SODIUM
     Indication: DEEP VEIN THROMBOSIS
     Route: 042
     Dates: start: 20180110, end: 20180112
  2. VANCOMYCINE [Concomitant]
     Active Substance: VANCOMYCIN
  3. FOLIC ACID. [Concomitant]
     Active Substance: FOLIC ACID
  4. DAUNORUBICIN [Suspect]
     Active Substance: DAUNORUBICIN
     Indication: ACUTE MYELOID LEUKAEMIA
     Route: 042
     Dates: start: 20180105, end: 20180107
  5. IMIPENEM [Concomitant]
     Active Substance: IMIPENEM
  6. VIALEBEX [Concomitant]
     Active Substance: ALBUMIN HUMAN
  7. RIBAVIRIN. [Suspect]
     Active Substance: RIBAVIRIN
     Indication: RESPIRATORY SYNCYTIAL VIRUS INFECTION
     Dosage: 9 DOSAGE FORM, QD
     Route: 048
     Dates: start: 20180103, end: 20180112
  8. CASPOFUNGINE [Concomitant]
     Active Substance: CASPOFUNGIN
  9. BECLOMETHASONE [Concomitant]
     Active Substance: BECLOMETHASONE
  10. BRICANYL [Concomitant]
     Active Substance: TERBUTALINE SULFATE
  11. PANTOPRAZOLE [Concomitant]
     Active Substance: PANTOPRAZOLE
  12. EMEND [Suspect]
     Active Substance: APREPITANT
     Indication: VOMITING
     Dosage: 80 MG
     Route: 048
     Dates: start: 20180106, end: 20180112
  13. ARACYTINE [Suspect]
     Active Substance: CYTARABINE
     Indication: ACUTE MYELOID LEUKAEMIA
     Route: 042
     Dates: start: 20180105, end: 20180112
  14. FUROSEMIDE. [Concomitant]
     Active Substance: FUROSEMIDE
  15. IPRATROPIUM [Concomitant]
     Active Substance: IPRATROPIUM
  16. FUNGIZONE [Concomitant]
     Active Substance: AMPHOTERICIN B

REACTIONS (3)
  - Haematoma [Fatal]
  - Shock haemorrhagic [Fatal]
  - Peritoneal haemorrhage [Fatal]
